FAERS Safety Report 25218828 (Version 1)
Quarter: 2025Q2

REPORT INFORMATION
  Report Type: Other
  Country: GB (occurrence: GB)
  Receive Date: 20250421
  Receipt Date: 20250421
  Transmission Date: 20250716
  Serious: Yes (Other)
  Sender: GLENMARK
  Company Number: None

PATIENT
  Age: 58 Year
  Sex: Female

DRUGS (16)
  1. MOMETASONE FUROATE [Suspect]
     Active Substance: MOMETASONE FUROATE
     Indication: Eczema
     Route: 065
     Dates: start: 201612
  2. MOMETASONE FUROATE [Suspect]
     Active Substance: MOMETASONE FUROATE
     Route: 065
     Dates: start: 201703
  3. MOMETASONE FUROATE [Suspect]
     Active Substance: MOMETASONE FUROATE
     Route: 065
     Dates: start: 201709
  4. MOMETASONE FUROATE [Suspect]
     Active Substance: MOMETASONE FUROATE
     Route: 065
     Dates: start: 20230701, end: 20231206
  5. PROTOPIC [Suspect]
     Active Substance: TACROLIMUS
     Indication: Product used for unknown indication
     Route: 065
     Dates: start: 20230101, end: 20230612
  6. PROTOPIC [Concomitant]
     Active Substance: TACROLIMUS
     Indication: Product used for unknown indication
     Route: 065
  7. ELIDEL [Concomitant]
     Active Substance: PIMECROLIMUS
     Indication: Product used for unknown indication
     Route: 065
  8. EUMOVATE [Concomitant]
     Active Substance: CLOBETASONE BUTYRATE
     Indication: Eczema
     Route: 065
     Dates: start: 201808
  9. EUMOVATE [Concomitant]
     Active Substance: CLOBETASONE BUTYRATE
     Route: 065
     Dates: start: 201901
  10. EUMOVATE [Concomitant]
     Active Substance: CLOBETASONE BUTYRATE
     Route: 065
     Dates: start: 202202
  11. BETAMETHASONE [Concomitant]
     Active Substance: BETAMETHASONE
     Indication: Eczema
     Route: 065
     Dates: start: 202202
  12. BETAMETHASONE [Concomitant]
     Active Substance: BETAMETHASONE
     Route: 065
     Dates: start: 202301
  13. HYDROCORTISONE [Concomitant]
     Active Substance: HYDROCORTISONE
     Indication: Eczema
     Route: 065
     Dates: start: 2023
  14. HYDROCORTISONE [Concomitant]
     Active Substance: HYDROCORTISONE
     Route: 065
     Dates: start: 202301
  15. FUSIDIC ACID [Concomitant]
     Active Substance: FUSIDIC ACID
     Indication: Eczema
     Dates: start: 2016
  16. FUSIDIC ACID [Concomitant]
     Active Substance: FUSIDIC ACID
     Dates: start: 2022

REACTIONS (34)
  - Skin ulcer [Unknown]
  - Nerve injury [Recovered/Resolved]
  - Temperature regulation disorder [Unknown]
  - Menstruation delayed [Recovering/Resolving]
  - Melanocytic naevus [Recovered/Resolved]
  - Lymphadenopathy [Not Recovered/Not Resolved]
  - Skin exfoliation [Not Recovered/Not Resolved]
  - Syncope [Unknown]
  - Topical steroid withdrawal reaction [Recovered/Resolved with Sequelae]
  - Steroid withdrawal syndrome [Recovering/Resolving]
  - Medication error [Unknown]
  - Alopecia [Recovering/Resolving]
  - Anxiety [Recovered/Resolved]
  - Eye pruritus [Unknown]
  - Eye discharge [Not Recovered/Not Resolved]
  - Weight decreased [Recovered/Resolved]
  - Fatigue [Recovered/Resolved with Sequelae]
  - Skin weeping [Recovered/Resolved]
  - Insomnia [Recovered/Resolved with Sequelae]
  - Constipation [Recovered/Resolved]
  - Skin wrinkling [Not Recovered/Not Resolved]
  - Bedridden [Unknown]
  - Loss of personal independence in daily activities [Unknown]
  - Screaming [Unknown]
  - Skin infection [Unknown]
  - General physical health deterioration [Unknown]
  - Depressed mood [Unknown]
  - Chills [Unknown]
  - Illness [Unknown]
  - Urticaria [Recovered/Resolved]
  - Sensitive skin [Unknown]
  - Skin burning sensation [Recovering/Resolving]
  - Pruritus [Unknown]
  - Drug ineffective [Unknown]

NARRATIVE: CASE EVENT DATE: 20240301
